FAERS Safety Report 5902948-5 (Version None)
Quarter: 2008Q3

REPORT INFORMATION
  Report Type: 
  Country: None (occurrence: None)
  Receive Date: 20080929
  Receipt Date: 20080929
  Transmission Date: 20090109
  Serious: Yes (Disabling, Other)
  Sender: FDA-Public Use
  Company Number: None

PATIENT
  Age: 45 Year
  Sex: Female
  Weight: 72.5755 kg

DRUGS (1)
  1. REQUIP [Suspect]
     Indication: RESTLESS LEGS SYNDROME
     Dosage: 2MG 1 PER NIGHT PO
     Route: 047
     Dates: start: 20080915, end: 20080915

REACTIONS (14)
  - CONDITION AGGRAVATED [None]
  - CYSTITIS [None]
  - DYSPNOEA [None]
  - DYSSTASIA [None]
  - HEART RATE INCREASED [None]
  - INSOMNIA [None]
  - KIDNEY INFECTION [None]
  - OEDEMA PERIPHERAL [None]
  - PALPITATIONS [None]
  - POISONING [None]
  - RESTLESS LEGS SYNDROME [None]
  - VISUAL ACUITY REDUCED [None]
  - VISUAL IMPAIRMENT [None]
  - VOMITING [None]
